FAERS Safety Report 20507315 (Version 1)
Quarter: 2022Q1

REPORT INFORMATION
  Report Type: Spontaneous
  Country: US (occurrence: US)
  Receive Date: 20220223
  Receipt Date: 20220223
  Transmission Date: 20220423
  Serious: No
  Sender: FDA-Public Use
  Company Number: US-BRACCO-2021US03782

PATIENT

DRUGS (1)
  1. ISOVUE 300 [Suspect]
     Active Substance: IOPAMIDOL
     Indication: Computerised tomogram head
     Dosage: UNK
     Route: 042

REACTIONS (3)
  - Intercepted product administration error [Unknown]
  - Liquid product physical issue [Unknown]
  - No adverse event [Unknown]
